FAERS Safety Report 24064408 (Version 1)
Quarter: 2024Q3

REPORT INFORMATION
  Report Type: Report from Study
  Country: FR (occurrence: FR)
  Receive Date: 20240709
  Receipt Date: 20240709
  Transmission Date: 20241016
  Serious: Yes (Death)
  Sender: MYLAN
  Company Number: FR-009507513-2312FRA005047

PATIENT
  Age: 52 Year
  Sex: Male

DRUGS (5)
  1. PACLITAXEL [Suspect]
     Active Substance: PACLITAXEL
     Indication: Head and neck cancer metastatic
     Dosage: 80 MILLIGRAM/SQ. METER
     Route: 065
     Dates: start: 20230929
  2. CISPLATIN [Suspect]
     Active Substance: CISPLATIN
     Indication: Head and neck cancer metastatic
     Dosage: UNK
     Route: 065
     Dates: start: 2023
  3. FLUOROURACIL [Suspect]
     Active Substance: FLUOROURACIL
     Indication: Head and neck cancer metastatic
     Dosage: UNK
     Route: 065
     Dates: start: 2023
  4. PEMBROLIZUMAB [Suspect]
     Active Substance: PEMBROLIZUMAB
     Indication: Head and neck cancer metastatic
     Dosage: 200 MILLIGRAM, Q3W,  EVERY 3 WEEKS
     Route: 065
     Dates: start: 20230720, end: 20230830
  5. CETUXIMAB [Suspect]
     Active Substance: CETUXIMAB
     Indication: Head and neck cancer metastatic
     Dosage: 400 MILLIGRAM/SQ. METER
     Route: 065
     Dates: start: 20230929

REACTIONS (1)
  - Malignant neoplasm progression [Fatal]

NARRATIVE: CASE EVENT DATE: 20230913
